FAERS Safety Report 12329529 (Version 1)
Quarter: 2016Q2

REPORT INFORMATION
  Report Type: Spontaneous
  Country: IN (occurrence: IN)
  Receive Date: 20160503
  Receipt Date: 20160503
  Transmission Date: 20160815
  Serious: Yes (Death)
  Sender: FDA-Public Use
  Company Number: IN-PFIZER INC-2015366594

PATIENT
  Age: 61 Year
  Sex: Male

DRUGS (1)
  1. SUTENT [Suspect]
     Active Substance: SUNITINIB MALATE
     Indication: GASTROINTESTINAL STROMAL TUMOUR
     Dosage: 50 MG, ONCE DAILY, CYCLIC, TWO WEEKS ON AND ONE WEEK OFF
     Route: 048
     Dates: start: 20151002

REACTIONS (6)
  - Death [Fatal]
  - Gastrointestinal stromal tumour [Unknown]
  - Disease progression [Unknown]
  - Oral mucosal blistering [Recovered/Resolved]
  - Abdominal pain upper [Recovered/Resolved]
  - Skin discolouration [Not Recovered/Not Resolved]

NARRATIVE: CASE EVENT DATE: 201510
